FAERS Safety Report 21389275 (Version 1)
Quarter: 2022Q3

REPORT INFORMATION
  Report Type: Spontaneous
  Country: DE (occurrence: DE)
  Receive Date: 20220929
  Receipt Date: 20220929
  Transmission Date: 20221026
  Serious: Yes (Hospitalization)
  Sender: FDA-Public Use
  Company Number: DE-ADRED-08131-01

PATIENT
  Age: 40 Year
  Sex: Male
  Weight: 74 kg

DRUGS (2)
  1. IBUPROFEN [Suspect]
     Active Substance: IBUPROFEN
     Indication: Product used for unknown indication
     Dosage: 400 MILLIGRAM, TWO TIMES A DAY
     Route: 048
  2. SPIKEVAX [Suspect]
     Active Substance: ELASOMERAN
     Indication: Product used for unknown indication
     Dosage: UNK( 2.DOSAGE)
     Route: 058

REACTIONS (6)
  - Hepatosplenomegaly [Unknown]
  - Chills [Unknown]
  - Liver function test abnormal [Unknown]
  - Liver disorder [Unknown]
  - Infectious mononucleosis [Unknown]
  - Pyrexia [Unknown]
